FAERS Safety Report 11912473 (Version 1)
Quarter: 2016Q1

REPORT INFORMATION
  Report Type: Spontaneous
  Country: GB (occurrence: GB)
  Receive Date: 20160113
  Receipt Date: 20160113
  Transmission Date: 20160526
  Serious: Yes (Other)
  Sender: FDA-Public Use
  Company Number: GB-AMGEN-GBRSP2015123399

PATIENT
  Age: 48 Year
  Sex: Male

DRUGS (1)
  1. ENBREL [Suspect]
     Active Substance: ETANERCEPT
     Indication: ANKYLOSING SPONDYLITIS
     Dosage: 50 MG, UNK
     Route: 065
     Dates: start: 20150827

REACTIONS (8)
  - Lower respiratory tract infection [Unknown]
  - Malaise [Not Recovered/Not Resolved]
  - Chest discomfort [Unknown]
  - Oropharyngeal pain [Unknown]
  - Nasopharyngitis [Unknown]
  - Pain [Unknown]
  - Musculoskeletal stiffness [Unknown]
  - Cough [Unknown]

NARRATIVE: CASE EVENT DATE: 2015
